FAERS Safety Report 6977034 (Version 2)
Quarter: 2014Q3

REPORT INFORMATION
  Report Type: Spontaneous
  Country: US (occurrence: None)
  Receive Date: 20090415
  Receipt Date: 20140912
  Transmission Date: 20150326
  Serious: Yes (Hospitalization, Other)
  Sender: FDA-Public Use
  Company Number: 2009S1002913

PATIENT
  Age: 71 Year
  Sex: Female
  Weight: 70 kg

DRUGS (6)
  1. PHAZYME [Suspect]
     Active Substance: DIMETHICONE 410
  2. BONIVA [Concomitant]
     Active Substance: IBANDRONATE SODIUM
  3. DULCOLAX (BISACODYL) [Suspect]
     Active Substance: BISACODYL
  4. MINOCIN (MINOCYCLINE HYDROCHLORIDE) [Concomitant]
  5. PHOSPHO-SODA [Suspect]
     Active Substance: SODIUM PHOSPHATE, DIBASIC\SODIUM PHOSPHATE, MONOBASIC
     Indication: COLONOSCOPY
     Dosage: 90 ML; TOTAL; PO
     Route: 048
     Dates: start: 20071106, end: 20071107
  6. FOSAMAX [Concomitant]
     Active Substance: ALENDRONATE SODIUM

REACTIONS (11)
  - Nausea [None]
  - Malaise [None]
  - Fatigue [None]
  - Urinary tract infection [None]
  - Iron deficiency anaemia [None]
  - Hypovolaemia [None]
  - Decreased appetite [None]
  - Pyelonephritis [None]
  - Renal cyst [None]
  - Renal failure acute [None]
  - Appendicitis [None]

NARRATIVE: CASE EVENT DATE: 20080125
